FAERS Safety Report 9394533 (Version 2)
Quarter: 2013Q3

REPORT INFORMATION
  Report Type: Report from Study
  Country: AU (occurrence: AU)
  Receive Date: 20130711
  Receipt Date: 20130912
  Transmission Date: 20140515
  Serious: Yes (Hospitalization, Disabling)
  Sender: FDA-Public Use
  Company Number: PHHY2013AU073408

PATIENT
  Age: 83 Year
  Sex: Female

DRUGS (8)
  1. ACLASTA [Suspect]
     Indication: OSTEOPOROSIS
     Dosage: 5 MG, UNK
     Route: 042
     Dates: start: 20110805
  2. ACLASTA [Suspect]
     Dosage: 5 MG, UNK
     Route: 042
     Dates: start: 20120730
  3. ADVANTAN [Concomitant]
     Dosage: 0.1% B.D. P.R.N.
     Route: 061
  4. ATACAND [Concomitant]
     Dosage: 16 MG, QD
     Route: 048
     Dates: start: 20111107
  5. EFUDIX [Concomitant]
     Dosage: 5%
     Route: 061
  6. ELOCON [Concomitant]
     Dosage: 0.1% APPLY DAILY
     Route: 061
  7. LOMOTIL                            /00034001/ [Concomitant]
     Dosage: 2.5MG/ 25MCG AS DIRECTED
  8. NORSPAN//BUPRENORPHINE [Concomitant]
     Dosage: 5MG SR 1 WEEKLY
     Route: 061
     Dates: start: 20121204

REACTIONS (4)
  - Osteoarthritis [Recovered/Resolved]
  - Spondylolisthesis [Not Recovered/Not Resolved]
  - Pain [Unknown]
  - Discomfort [Unknown]
